FAERS Safety Report 24382338 (Version 2)
Quarter: 2025Q1

REPORT INFORMATION
  Report Type: Report from Study
  Country: DE (occurrence: DE)
  Receive Date: 20241001
  Receipt Date: 20250211
  Transmission Date: 20250408
  Serious: Yes (Other)
  Sender: ROCHE
  Company Number: DE-ROCHE-2871283

PATIENT
  Age: 56 Year
  Sex: Female
  Weight: 62.0 kg

DRUGS (9)
  1. OCREVUS [Suspect]
     Active Substance: OCRELIZUMAB
     Indication: Relapsing-remitting multiple sclerosis
     Dosage: 5TH MAINTENANCE DOSE, LAST INFUSION WAS ON 11/APR/2022,?600 MG 186 DAYS
     Route: 042
     Dates: start: 20191001
  2. OCREVUS [Suspect]
     Active Substance: OCRELIZUMAB
     Route: 042
     Dates: start: 202010
  3. OCREVUS [Suspect]
     Active Substance: OCRELIZUMAB
     Route: 042
     Dates: start: 20210430
  4. OCREVUS [Suspect]
     Active Substance: OCRELIZUMAB
     Route: 042
  5. COMIRNATY (TOZINAMERAN) [Suspect]
     Active Substance: TOZINAMERAN
     Indication: COVID-19 prophylaxis
     Route: 065
  6. CORTISONE [Suspect]
     Active Substance: CORTISONE
     Indication: Product used for unknown indication
     Route: 065
  7. SPIKEVAX [Suspect]
     Active Substance: CX-046684
     Indication: COVID-19 prophylaxis
     Route: 065
  8. CLINDAMYCIN [Suspect]
     Active Substance: CLINDAMYCIN
     Indication: Product used for unknown indication
     Route: 065
  9. IBUPROFEN [Concomitant]
     Active Substance: IBUPROFEN

REACTIONS (55)
  - Syncope [Recovered/Resolved]
  - Heart rate increased [Recovered/Resolved]
  - Hypertension [Recovered/Resolved]
  - Temperature intolerance [Not Recovered/Not Resolved]
  - Hyperhidrosis [Recovered/Resolved]
  - Lymphocyte count decreased [Recovered/Resolved]
  - Lipase increased [Recovered/Resolved]
  - Monocyte count increased [Recovered/Resolved]
  - Eosinophil count increased [Recovered/Resolved]
  - Muscular weakness [Recovered/Resolved]
  - Dysphagia [Recovered/Resolved]
  - Multiple sclerosis [Not Recovered/Not Resolved]
  - Cognitive disorder [Unknown]
  - Coordination abnormal [Unknown]
  - Mastication disorder [Unknown]
  - SARS-CoV-2 antibody test negative [Not Recovered/Not Resolved]
  - Peripheral swelling [Recovered/Resolved]
  - Skin fissures [Recovered/Resolved]
  - Astigmatism [Not Recovered/Not Resolved]
  - Lenticular opacities [Not Recovered/Not Resolved]
  - Solar lentigo [Recovered/Resolved]
  - Skin cancer [Recovered/Resolved]
  - Skin hypertrophy [Recovered/Resolved]
  - Pain of skin [Recovered/Resolved]
  - Insomnia [Recovered/Resolved]
  - Cystitis noninfective [Recovered/Resolved]
  - Drug ineffective [Unknown]
  - Inappropriate schedule of product administration [Unknown]
  - Dysplastic naevus [Unknown]
  - Influenza like illness [Recovered/Resolved]
  - Abnormal loss of weight [Not Recovered/Not Resolved]
  - Granulocyte count decreased [Recovered/Resolved]
  - Basophil count decreased [Recovered/Resolved]
  - Headache [Recovered/Resolved]
  - Hyperacusis [Recovered/Resolved]
  - Pigmentation disorder [Recovered/Resolved]
  - Melanocytic naevus [Unknown]
  - Emotional disorder [Recovered/Resolved]
  - Neutrophil count decreased [Recovered/Resolved]
  - Gait disturbance [Recovered/Resolved]
  - Fatigue [Recovered/Resolved]
  - Skin wound [Recovered/Resolved]
  - Bone loss [Not Recovered/Not Resolved]
  - Dental caries [Not Recovered/Not Resolved]
  - Bone density decreased [Not Recovered/Not Resolved]
  - Osteitis [Not Recovered/Not Resolved]
  - Gingival atrophy [Not Recovered/Not Resolved]
  - Drug hypersensitivity [Not Recovered/Not Resolved]
  - White blood cell count decreased [Recovered/Resolved]
  - B-lymphocyte count decreased [Not Recovered/Not Resolved]
  - Lymphocyte count decreased [Recovered/Resolved]
  - COVID-19 [Recovered/Resolved]
  - Immobile [Recovered/Resolved]
  - Incontinence [Recovered/Resolved]
  - Influenza [Recovering/Resolving]

NARRATIVE: CASE EVENT DATE: 20191001
